FAERS Safety Report 5267559-6 (Version None)
Quarter: 2007Q1

REPORT INFORMATION
  Report Type: 
  Country: None (occurrence: None)
  Receive Date: 20070316
  Receipt Date: 20070306
  Transmission Date: 20070707
  Serious: Yes (Hospitalization)
  Sender: FDA-Public Use
  Company Number: CA-BRISTOL-MYERS SQUIBB COMPANY-13717657

PATIENT
  Age: 59 Year
  Sex: Male
  Weight: 97 kg

DRUGS (6)
  1. CETUXIMAB [Suspect]
     Indication: COLORECTAL CANCER METASTATIC
     Route: 042
     Dates: start: 20070209, end: 20070302
  2. MINOCYCLINE HCL [Suspect]
     Indication: RASH
     Dates: start: 20070201, end: 20070309
  3. HEPARIN SODIUM [Concomitant]
  4. METRONIDAZOLE [Concomitant]
     Indication: RASH
  5. TOPICAL STEROID CREAM [Concomitant]
     Indication: RASH
     Dates: start: 20070201
  6. CLARITHROMYCIN [Concomitant]
     Indication: INFECTION PROPHYLAXIS
     Dates: start: 20070302

REACTIONS (1)
  - SERUM SICKNESS [None]
